FAERS Safety Report 10244900 (Version 1)
Quarter: 2014Q2

REPORT INFORMATION
  Report Type: Spontaneous
  Country: US (occurrence: None)
  Receive Date: 20140616
  Receipt Date: 20140616
  Transmission Date: 20141212
  Serious: Yes (Hospitalization)
  Sender: FDA-Public Use
  Company Number: None

PATIENT
  Age: 10 Year
  Sex: Female
  Weight: 31.75 kg

DRUGS (1)
  1. IMURAN [Suspect]
     Indication: CROHN^S DISEASE
     Dosage: 1 TAB  ONCE DAILY TAKEN BY MOUTH
     Route: 048
     Dates: start: 20140414, end: 20140520

REACTIONS (2)
  - Syncope [None]
  - Headache [None]
